FAERS Safety Report 9831985 (Version 1)
Quarter: 2014Q1

REPORT INFORMATION
  Report Type: Spontaneous
  Country: FR (occurrence: FR)
  Receive Date: 20140121
  Receipt Date: 20140121
  Transmission Date: 20141002
  Serious: Yes (Hospitalization)
  Sender: FDA-Public Use
  Company Number: FR-SA-2014SA004681

PATIENT
  Age: 91 Year
  Sex: Male

DRUGS (8)
  1. LASILIX [Suspect]
     Indication: PRODUCT USED FOR UNKNOWN INDICATION
     Dosage: STRENGTH: 40 MG
     Route: 048
     Dates: end: 20131107
  2. AMLOR [Suspect]
     Indication: PRODUCT USED FOR UNKNOWN INDICATION
     Dosage: STRENGTH: 5 MG
     Route: 048
     Dates: end: 20131104
  3. EBIXA [Concomitant]
     Route: 048
  4. CORDARONE [Concomitant]
     Dosage: EXCEPT SUNDAY AND SATURDAY
     Route: 048
  5. KARDEGIC [Concomitant]
     Route: 048
  6. KALEORID [Concomitant]
     Route: 048
     Dates: end: 2013
  7. INIPOMP [Concomitant]
     Route: 048
  8. TRAVATAN [Concomitant]
     Dosage: 1 VIAL/ DAY
     Route: 047

REACTIONS (2)
  - Fall [Recovered/Resolved with Sequelae]
  - Hypotension [Recovered/Resolved with Sequelae]
